FAERS Safety Report 13734298 (Version 2)
Quarter: 2017Q3

REPORT INFORMATION
  Report Type: Spontaneous
  Country: BE (occurrence: BE)
  Receive Date: 20170708
  Receipt Date: 20170718
  Transmission Date: 20171127
  Serious: Yes (Hospitalization)
  Sender: FDA-Public Use
  Company Number: BE-TEVA-783368ROM

PATIENT
  Age: 82 Year
  Sex: Male

DRUGS (2)
  1. AZILECT [Suspect]
     Active Substance: RASAGILINE MESYLATE
     Indication: PARKINSON^S DISEASE
  2. SIPRALEXA [Interacting]
     Active Substance: ESCITALOPRAM OXALATE

REACTIONS (5)
  - Drug interaction [Not Recovered/Not Resolved]
  - Hyperthermia [Unknown]
  - Psychomotor hyperactivity [Not Recovered/Not Resolved]
  - Serotonin syndrome [Not Recovered/Not Resolved]
  - Dyspnoea [Recovered/Resolved]
